FAERS Safety Report 9203547 (Version 1)
Quarter: 2013Q2

REPORT INFORMATION
  Report Type: Report from Study
  Country: JP (occurrence: JP)
  Receive Date: 20130402
  Receipt Date: 20130402
  Transmission Date: 20140414
  Serious: Yes (Hospitalization)
  Sender: FDA-Public Use
  Company Number: PHHO2012JP012188

PATIENT
  Age: 39 Year
  Sex: Male
  Weight: 70 kg

DRUGS (33)
  1. BLINDED ALISKIREN [Suspect]
     Indication: CARDIAC FAILURE
     Dosage: CODE NOT BROKEN
     Route: 048
     Dates: start: 20100604
  2. BLINDED ENALAPRIL [Suspect]
     Indication: CARDIAC FAILURE
     Dosage: CODE NOT BROKEN
     Route: 048
     Dates: start: 20100604
  3. BLINDED NO TREATMENT RECEIVED [Suspect]
     Indication: CARDIAC FAILURE
     Dosage: CODE NOT BROKEN
     Route: 048
     Dates: start: 20100604
  4. ENALAPRIL [Concomitant]
     Indication: CARDIAC FAILURE CHRONIC
     Dosage: 10 MG, QD
     Route: 048
     Dates: start: 20100410
  5. ENALAPRIL [Concomitant]
     Dosage: 20 MG, QD
     Route: 048
     Dates: start: 20100423
  6. CARVEDILOL [Concomitant]
     Indication: CARDIAC FAILURE CHRONIC
     Dosage: 10 MG, UNK
     Route: 048
  7. DIGOSIN [Concomitant]
     Indication: CARDIAC FAILURE CHRONIC
     Dosage: 0.25 MG, UNK
     Route: 048
  8. EPLERENONE [Concomitant]
     Indication: CARDIAC FAILURE CHRONIC
     Dosage: 25 MG, UNK
     Route: 048
  9. LASIX [Concomitant]
     Indication: CARDIAC FAILURE CHRONIC
     Dosage: 20 MG, UNK
     Route: 042
  10. LASIX [Concomitant]
     Dosage: 80 MG, UNK
     Route: 048
  11. LASIX [Concomitant]
     Dosage: 100 MG, UNK
     Route: 048
  12. LASIX [Concomitant]
     Dosage: 140 MG, UNK
     Route: 048
     Dates: start: 20120816
  13. LASIX [Concomitant]
     Dosage: 40 MG, UNK
     Route: 048
     Dates: end: 20130107
  14. LASIX [Concomitant]
     Dosage: 80 MG, UNK
     Route: 048
     Dates: start: 20130108, end: 20130110
  15. LASIX [Concomitant]
     Dosage: 60 MG, UNK
     Route: 048
     Dates: start: 20130111
  16. WARFARIN [Concomitant]
     Indication: THROMBOSIS PROPHYLAXIS
     Dosage: 2.5 MG, UNK
     Route: 048
     Dates: start: 20120131, end: 20120815
  17. WARFARIN [Concomitant]
     Dosage: 2.5 MG, UNK
     Route: 048
     Dates: start: 20121019
  18. WARFARIN [Concomitant]
     Dosage: 2.25 MG, UNK
     Route: 048
     Dates: start: 20130206
  19. LIPITOR [Concomitant]
     Indication: DYSLIPIDAEMIA
     Dosage: 5 MG, UNK
     Route: 048
  20. LUPRAC [Concomitant]
     Indication: CARDIAC FAILURE CHRONIC
     Dosage: 4 MG, UNK
     Route: 048
  21. ROHYPNOL [Concomitant]
     Indication: INSOMNIA
     Dosage: 1 MG, UNK
     Route: 048
  22. MYSLEE [Concomitant]
     Indication: INSOMNIA
     Dosage: 5 MG, UNK
     Route: 048
  23. ALOSENN [Concomitant]
     Indication: CONSTIPATION
     Dosage: 1 MG,
     Route: 048
     Dates: start: 20120903
  24. ALOSENN [Concomitant]
     Dosage: 1 MG,
     Route: 048
  25. ISODINE [Concomitant]
     Indication: INFECTION PROPHYLAXIS
     Route: 048
  26. MAGLAX [Concomitant]
     Indication: CONSTIPATION
     Dosage: 1500 MG,
     Route: 048
     Dates: start: 20120829
  27. REBAMIPIDE [Concomitant]
     Indication: GASTRITIS PROPHYLAXIS
     Dosage: 300 MG,
     Route: 048
     Dates: start: 20130118
  28. FLUNITRAZEPAM [Concomitant]
     Indication: INSOMNIA
     Dosage: 1 MG, UNK
     Route: 048
  29. ZOLPIDEM TARTRATE [Concomitant]
     Indication: INSOMNIA
     Dosage: 5 MG, UNK
     Route: 048
  30. RESTAMIN CORTISONE [Concomitant]
     Indication: DRY SKIN
     Dosage: 1 DF, UNK
     Route: 061
     Dates: start: 20130219
  31. HIRUDOID [Concomitant]
     Indication: DRY SKIN
     Dosage: 1 DF, UNK
     Route: 061
     Dates: start: 20130205
  32. FLUITRAN [Concomitant]
     Indication: CARDIAC FAILURE CHRONIC
     Dosage: 0.5 MG, QD
     Route: 048
     Dates: start: 20130322
  33. SENNA LEAF [Concomitant]
     Indication: CONSTIPATION
     Dosage: 1 MG, UNK
     Route: 048

REACTIONS (1)
  - Cardiac failure chronic [Not Recovered/Not Resolved]
